FAERS Safety Report 8269079-3 (Version None)
Quarter: 2012Q2

REPORT INFORMATION
  Report Type: 
  Country: None (occurrence: None)
  Receive Date: 20120409
  Receipt Date: 20120406
  Transmission Date: 20120825
  Serious: Yes (Other)
  Sender: FDA-Public Use
  Company Number: US-BAYER-2012-033929

PATIENT
  Age: 45 Year
  Sex: Female

DRUGS (6)
  1. VITAMIN D [Concomitant]
  2. CHONDROITIN W/GLUCOSAMINE [Concomitant]
  3. BETASERON [Suspect]
     Indication: PRODUCT USED FOR UNKNOWN INDICATION
     Dosage: 0.25 MG, QOD
     Route: 058
  4. IBUPROFEN [Concomitant]
  5. NASONEX [Concomitant]
     Dosage: 50 MCG/AC
  6. FISH OIL [Concomitant]

REACTIONS (3)
  - VISUAL IMPAIRMENT [None]
  - MULTIPLE SCLEROSIS RELAPSE [None]
  - OPTIC NEURITIS [None]
